FAERS Safety Report 6120294-4 (Version None)
Quarter: 2009Q1

REPORT INFORMATION
  Report Type: 
  Country: None (occurrence: None)
  Receive Date: 20090312
  Receipt Date: 20090225
  Transmission Date: 20090719
  Serious: Yes (Other)
  Sender: FDA-Public Use
  Company Number: 2009S1003484

PATIENT
  Age: 59 Year
  Sex: Male
  Weight: 120 kg

DRUGS (5)
  1. ALLOPURINOL [Suspect]
     Indication: GOUT
     Dosage: 300 MG; DAILY; ORAL
     Route: 048
     Dates: start: 20080701, end: 20090101
  2. ENOXAPARIN SODIUM [Suspect]
     Indication: THROMBOSIS
     Dosage: SUBCUTANEOUS
     Route: 058
     Dates: start: 20081001, end: 20090101
  3. ASPIRIN [Concomitant]
  4. ATACAND [Concomitant]
  5. MUNOBAL [Concomitant]

REACTIONS (3)
  - DERMATITIS ALLERGIC [None]
  - RENAL FAILURE ACUTE [None]
  - TUBULOINTERSTITIAL NEPHRITIS [None]
